FAERS Safety Report 8764091 (Version 1)
Quarter: 2012Q4

REPORT INFORMATION
  Report Type: 
  Country: FR (occurrence: FR)
  Receive Date: 20120831
  Receipt Date: 20120831
  Transmission Date: 20130627
  Serious: Yes (Hospitalization, Other)
  Sender: FDA-Public Use
  Company Number: FR-PFIZER INC-2012212911

PATIENT
  Age: 72 Year
  Sex: Female

DRUGS (11)
  1. TRIATEC [Suspect]
     Indication: HYPERTENSION
     Dosage: 2.5 mg, daily
     Route: 048
     Dates: end: 201208
  2. TRIATEC [Suspect]
     Dosage: 1.25 mg, daily
     Route: 048
     Dates: start: 201208
  3. NEORAL [Suspect]
     Indication: PROPHYLAXIS AGAINST TRANSPLANT REJECTION
     Dosage: 75 mg, 2x/day
     Route: 048
     Dates: start: 200404, end: 201208
  4. NEORAL [Suspect]
     Dosage: 50 mg, 2x/day
     Route: 048
     Dates: start: 201208
  5. CERTICAN [Suspect]
     Indication: PROPHYLAXIS AGAINST TRANSPLANT REJECTION
     Dosage: 0.75 mg, 2x/day
     Route: 048
     Dates: start: 200404, end: 201208
  6. CERTICAN [Suspect]
     Dosage: 0.75 mg morning and 0.50 mg evening
     Dates: start: 201208
  7. SOLUPRED [Concomitant]
     Dosage: UNK
  8. EUPRESSYL [Concomitant]
     Dosage: UNK
  9. LEVOTHYROX [Concomitant]
     Dosage: UNK
  10. KARDEGIC [Concomitant]
     Dosage: UNK
  11. TOPALGIC [Concomitant]
     Indication: GOUT
     Dosage: UNK
     Dates: start: 201107, end: 201108

REACTIONS (10)
  - Renal failure [Recovered/Resolved]
  - Urinary tract infection [Unknown]
  - Loss of consciousness [Unknown]
  - Presyncope [Unknown]
  - Weight decreased [Unknown]
  - Dyspnoea exertional [Unknown]
  - Asthenia [Unknown]
  - Palpitations [Unknown]
  - Inflammation [Unknown]
  - Oedema peripheral [Unknown]
